FAERS Safety Report 21232292 (Version 9)
Quarter: 2025Q3

REPORT INFORMATION
  Report Type: Spontaneous
  Country: US (occurrence: US)
  Receive Date: 20220819
  Receipt Date: 20250807
  Transmission Date: 20251020
  Serious: No
  Sender: BIOGEN
  Company Number: US-BIOGEN-2021BI01067273

PATIENT
  Sex: Female

DRUGS (3)
  1. TYSABRI [Suspect]
     Active Substance: NATALIZUMAB
     Indication: Multiple sclerosis
     Dosage: INFUSED OVER 1 HOUR?START DATE ALSO REPORTED AS 16-JUN-2021
     Route: 050
     Dates: start: 20210525, end: 20231004
  2. TYSABRI [Suspect]
     Active Substance: NATALIZUMAB
     Route: 050
     Dates: start: 20250324
  3. BENADRYL [Suspect]
     Active Substance: DIPHENHYDRAMINE HYDROCHLORIDE
     Indication: Product used for unknown indication
     Route: 050

REACTIONS (18)
  - Therapeutic response shortened [Unknown]
  - Multiple sclerosis [Unknown]
  - Laryngitis [Unknown]
  - Hypersomnia [Unknown]
  - Drug withdrawal syndrome [Unknown]
  - General physical health deterioration [Unknown]
  - Dysphagia [Unknown]
  - Hepatic enzyme abnormal [Unknown]
  - Lipids abnormal [Unknown]
  - Gait inability [Unknown]
  - Face injury [Unknown]
  - Lip injury [Unknown]
  - Aphonia [Unknown]
  - Fall [Recovered/Resolved]
  - Limb injury [Unknown]
  - Muscle spasms [Unknown]
  - Tremor [Unknown]
  - Urinary tract infection [Recovered/Resolved]

NARRATIVE: CASE EVENT DATE: 20220101
